FAERS Safety Report 9866422 (Version 1)
Quarter: 2014Q1

REPORT INFORMATION
  Report Type: Spontaneous
  Country: FR (occurrence: FR)
  Receive Date: 20140204
  Receipt Date: 20140204
  Transmission Date: 20141002
  Serious: Yes (Hospitalization)
  Sender: FDA-Public Use
  Company Number: FR-ROCHE-1342652

PATIENT
  Age: 81 Year
  Sex: Male

DRUGS (7)
  1. TAMIFLU [Suspect]
     Indication: PRODUCT USED FOR UNKNOWN INDICATION
     Route: 065
     Dates: start: 20131227, end: 20131228
  2. CEFTRIAXONE SODIUM [Suspect]
     Indication: PRODUCT USED FOR UNKNOWN INDICATION
     Route: 065
     Dates: start: 20131225, end: 20131226
  3. TAVANIC [Suspect]
     Indication: PRODUCT USED FOR UNKNOWN INDICATION
     Route: 065
     Dates: start: 20131227, end: 20140103
  4. PIPERACILLIN SODIUM/TAZOBACTAM SODIUM [Suspect]
     Indication: PRODUCT USED FOR UNKNOWN INDICATION
     Route: 065
     Dates: start: 20131227, end: 20140107
  5. FUROSEMIDE RENAUDIN [Suspect]
     Indication: PRODUCT USED FOR UNKNOWN INDICATION
     Route: 065
     Dates: start: 20131225
  6. ROVAMYCINE [Concomitant]
     Route: 065
     Dates: start: 20131225, end: 20131226
  7. AMIKACINE [Concomitant]
     Route: 065
     Dates: start: 20131227, end: 20131231

REACTIONS (1)
  - Thrombocytopenia [Not Recovered/Not Resolved]
